FAERS Safety Report 4318220-3 (Version None)
Quarter: 2004Q1

REPORT INFORMATION
  Report Type: 
  Country: None (occurrence: None)
  Receive Date: 20040315
  Receipt Date: 20040226
  Transmission Date: 20041129
  Serious: Yes (Hospitalization, Disabling, Other)
  Sender: FDA-Public Use
  Company Number: WAES 0403GBR00006

PATIENT
  Age: 66 Year
  Sex: Female

DRUGS (1)
  1. OI LACRISERT (HYDROXYPROPYL CELLULOSE) [Suspect]
     Indication: KERATOCONJUNCTIVITIS SICCA
     Dosage: 5 MG/DAILY
     Route: 047
     Dates: start: 19920101, end: 20040113

REACTIONS (4)
  - BACTERIAL CULTURE POSITIVE [None]
  - CATARACT [None]
  - ENDOPHTHALMITIS [None]
  - POSTOPERATIVE INFECTION [None]
